FAERS Safety Report 5084643-0 (Version None)
Quarter: 2006Q3

REPORT INFORMATION
  Report Type: 
  Country: None (occurrence: None)
  Receive Date: 20060821
  Receipt Date: 20060811
  Transmission Date: 20061208
  Serious: Yes (Other)
  Sender: FDA-Public Use
  Company Number: 2006UW16075

PATIENT
  Age: 39 Year
  Sex: Female

DRUGS (1)
  1. ZOLADEX [Suspect]
     Indication: BENIGN NEOPLASM
     Dosage: THREE TIMES
     Route: 058
     Dates: start: 20040101, end: 20040101

REACTIONS (3)
  - ABORTION SPONTANEOUS [None]
  - DRUG EXPOSURE DURING PREGNANCY [None]
  - PREGNANCY [None]
